FAERS Safety Report 6397224-3 (Version None)
Quarter: 2009Q4

REPORT INFORMATION
  Report Type: 
  Country: None (occurrence: None)
  Receive Date: 20091012
  Receipt Date: 20090928
  Transmission Date: 20100525
  Serious: Yes (Hospitalization)
  Sender: FDA-Public Use
  Company Number: US-ELI_LILLY_AND_COMPANY-US200908001993

PATIENT
  Sex: Female

DRUGS (1)
  1. FORTEO [Suspect]
     Indication: OSTEOPOROSIS
     Dosage: UNK, DAILY (1/D)
     Route: 058
     Dates: start: 20090706

REACTIONS (7)
  - FATIGUE [None]
  - FEMUR FRACTURE [None]
  - INJECTION SITE HAEMATOMA [None]
  - MEDICAL DEVICE CHANGE [None]
  - MUSCULAR WEAKNESS [None]
  - NAUSEA [None]
  - TRANSFUSION [None]
